FAERS Safety Report 4854945-9 (Version None)
Quarter: 2005Q4

REPORT INFORMATION
  Report Type: 
  Country: None (occurrence: None)
  Receive Date: 20051213
  Receipt Date: 20051201
  Transmission Date: 20060501
  Serious: Yes (Death)
  Sender: FDA-Public Use
  Company Number: 28088

PATIENT
  Age: 35 Year
  Sex: Female

DRUGS (1)
  1. FLECAINIDE ACETATE [Suspect]

REACTIONS (1)
  - OVERDOSE [None]
